FAERS Safety Report 4613455-4 (Version None)
Quarter: 2005Q1

REPORT INFORMATION
  Report Type: 
  Country: None (occurrence: None)
  Receive Date: 20050316
  Receipt Date: 20050307
  Transmission Date: 20050727
  Serious: Yes (Life-Threatening, Hospitalization, Other)
  Sender: FDA-Public Use
  Company Number: 2005JP000265

PATIENT
  Age: 23 Year
  Sex: Female
  Weight: 61.5 kg

DRUGS (13)
  1. PROGRAF [Suspect]
     Indication: LIVER TRANSPLANT
     Dosage: SEE IMAGE
     Route: 042
     Dates: start: 20050125, end: 20050125
  2. PROGRAF [Suspect]
     Indication: LIVER TRANSPLANT
     Dosage: SEE IMAGE
     Route: 042
     Dates: start: 20050126, end: 20050126
  3. PROGRAF [Suspect]
     Indication: LIVER TRANSPLANT
     Dosage: SEE IMAGE
     Route: 042
     Dates: start: 20050127, end: 20050127
  4. PROGRAF [Suspect]
     Indication: LIVER TRANSPLANT
     Dosage: SEE IMAGE
     Route: 042
     Dates: start: 20050128, end: 20050128
  5. PROGRAF [Suspect]
     Indication: LIVER TRANSPLANT
     Dosage: SEE IMAGE
     Route: 042
     Dates: start: 20050129, end: 20050129
  6. PROGRAF [Suspect]
     Indication: LIVER TRANSPLANT
     Dosage: SEE IMAGE
     Route: 042
     Dates: start: 20050130, end: 20050130
  7. PROGRAF [Suspect]
     Indication: LIVER TRANSPLANT
     Dosage: SEE IMAGE
     Route: 042
     Dates: start: 20050131, end: 20050131
  8. PRODIF                           (FLUCONAZOLE) [Suspect]
     Indication: FUNGAEMIA
     Dosage: SEE IMAGE
     Route: 042
     Dates: start: 20050119, end: 20050120
  9. PRODIF                           (FLUCONAZOLE) [Suspect]
     Indication: FUNGAEMIA
     Dosage: SEE IMAGE
     Route: 042
     Dates: start: 20050121, end: 20050123
  10. PRODIF                           (FLUCONAZOLE) [Suspect]
     Indication: FUNGAEMIA
     Dosage: SEE IMAGE
     Route: 042
     Dates: start: 20050126, end: 20050127
  11. PRODIF                           (FLUCONAZOLE) [Suspect]
     Indication: FUNGAEMIA
     Dosage: SEE IMAGE
     Route: 042
     Dates: start: 20050128, end: 20050128
  12. TAZOCIN             (PIPERCILLIN SODIUM, TAZOBACTAM SODIUM) [Concomitant]
  13. SOLU-MEDROL [Concomitant]

REACTIONS (7)
  - ABDOMINAL HAEMATOMA [None]
  - DRUG INTERACTION [None]
  - DRUG LEVEL INCREASED [None]
  - HAEMODIALYSIS [None]
  - POST PROCEDURAL HAEMORRHAGE [None]
  - RENAL IMPAIRMENT [None]
  - THROMBOTIC THROMBOCYTOPENIC PURPURA [None]
